FAERS Safety Report 5682870-2 (Version None)
Quarter: 2008Q1

REPORT INFORMATION
  Report Type: 
  Country: None (occurrence: None)
  Receive Date: 20080327
  Receipt Date: 20080325
  Transmission Date: 20080703
  Serious: Yes (Death)
  Sender: FDA-Public Use
  Company Number: B0513624A

PATIENT

DRUGS (4)
  1. PAXIL [Suspect]
     Indication: DRUG USE FOR UNKNOWN INDICATION
     Route: 048
  2. LEXOTAN [Concomitant]
     Route: 048
  3. UNSPECIFIED DRUG [Concomitant]
     Route: 048
  4. TRYPTANOL [Concomitant]
     Route: 048

REACTIONS (1)
  - OVERDOSE [None]
